FAERS Safety Report 6552455-4 (Version None)
Quarter: 2010Q1

REPORT INFORMATION
  Report Type: 
  Country: None (occurrence: None)
  Receive Date: 20100126
  Receipt Date: 20100115
  Transmission Date: 20100710
  Serious: Yes (Hospitalization)
  Sender: FDA-Public Use
  Company Number: PHHY2010JP00697

PATIENT
  Age: 26 Year
  Sex: Female

DRUGS (6)
  1. CYCLOSPORINE [Suspect]
     Indication: HEPATITIS B
     Dosage: 12.5 MG/DAY
  2. METHYLPREDNISOLONE ACETATE [Concomitant]
     Indication: HEPATITIS B
     Dosage: 1000 MG /DAY
  3. METHYLPREDNISOLONE ACETATE [Concomitant]
     Dosage: 500 MG/DAY
  4. ENTECAVIR [Concomitant]
  5. INTERFERON BETA [Concomitant]
  6. PLASMAPHERESIS [Concomitant]

REACTIONS (2)
  - LIVER FUNCTION TEST ABNORMAL [None]
  - PNEUMATOSIS INTESTINALIS [None]
